FAERS Safety Report 11749218 (Version 1)
Quarter: 2015Q4

REPORT INFORMATION
  Report Type: Spontaneous
  Country: US (occurrence: None)
  Receive Date: 20151116
  Receipt Date: 20151116
  Transmission Date: 20160304
  Serious: Yes (Hospitalization)
  Sender: FDA-Public Use
  Company Number: None

PATIENT
  Age: 61 Year
  Sex: Male
  Weight: 71.4 kg

DRUGS (1)
  1. CISPLATIN. [Suspect]
     Active Substance: CISPLATIN
     Dates: end: 20140922

REACTIONS (3)
  - Weight decreased [None]
  - Mucosal inflammation [None]
  - Gastrostomy [None]

NARRATIVE: CASE EVENT DATE: 20151017
